FAERS Safety Report 13717702 (Version 2)
Quarter: 2017Q4

REPORT INFORMATION
  Report Type: Report from Study
  Country: US (occurrence: US)
  Receive Date: 20170705
  Receipt Date: 20171217
  Transmission Date: 20180320
  Serious: No
  Sender: FDA-Public Use
  Company Number: PHEH2017US020562

PATIENT

DRUGS (1)
  1. ILARIS [Suspect]
     Active Substance: CANAKINUMAB
     Indication: STILL^S DISEASE
     Dosage: 75 MG, EVERY 4 WEEKS
     Route: 058

REACTIONS (4)
  - Malaise [Unknown]
  - Lice infestation [Unknown]
  - Pyrexia [Unknown]
  - Nasopharyngitis [Unknown]
